FAERS Safety Report 9897271 (Version 1)
Quarter: 2014Q1

REPORT INFORMATION
  Report Type: Other
  Country: US (occurrence: US)
  Receive Date: 20140214
  Receipt Date: 20140214
  Transmission Date: 20141002
  Serious: Yes (Hospitalization)
  Sender: FDA-Public Use
  Company Number: US-SHIRE-ALL1-2014-00962

PATIENT
  Age: 79 Year
  Sex: Female
  Weight: 67.12 kg

DRUGS (6)
  1. PENTASA [Suspect]
     Indication: CROHN^S DISEASE
     Dosage: 1000 MG, 3X/DAY:TID
     Route: 048
  2. NEXIUM                             /01479302/ [Concomitant]
     Indication: GASTRIC DISORDER
     Dosage: 40 MG, 2X/DAY:BID
     Route: 048
  3. CARVEDILOL [Concomitant]
     Indication: CARDIAC DISORDER
     Dosage: 6.25 MG, 2X/DAY:BID
     Route: 048
  4. CARVEDILOL [Concomitant]
     Indication: BLOOD PRESSURE INCREASED
  5. HYDROCODONE [Concomitant]
     Indication: PAIN
     Dosage: 5/500 MG, AS NEEDED
     Route: 048
  6. ALPRAZOLAM [Concomitant]
     Indication: ANXIETY
     Dosage: 1 MG, 2X/DAY:BID
     Route: 048

REACTIONS (5)
  - Pneumonia [Recovered/Resolved]
  - Loss of consciousness [Recovered/Resolved]
  - Memory impairment [Not Recovered/Not Resolved]
  - Malaise [Recovered/Resolved]
  - Off label use [Not Recovered/Not Resolved]
